FAERS Safety Report 18834704 (Version 1)
Quarter: 2021Q1

REPORT INFORMATION
  Report Type: Spontaneous
  Country: US (occurrence: US)
  Receive Date: 20210203
  Receipt Date: 20210203
  Transmission Date: 20210419
  Serious: Yes (Hospitalization)
  Sender: FDA-Public Use
  Company Number: US-ROCHE-2762413

PATIENT
  Sex: Female
  Weight: 122 kg

DRUGS (6)
  1. OTEZLA [Concomitant]
     Active Substance: APREMILAST
     Route: 048
     Dates: start: 20200715
  2. ALBUTEROL. [Concomitant]
     Active Substance: ALBUTEROL
     Route: 048
     Dates: start: 20190823
  3. BENADRYL ALLERGY [Concomitant]
     Active Substance: DIPHENHYDRAMINE HYDROCHLORIDE
     Route: 048
     Dates: start: 20190823
  4. XOLAIR [Suspect]
     Active Substance: OMALIZUMAB
     Indication: PSORIATIC ARTHROPATHY
     Dosage: INJECT 300 MG SUBCUTANEOUSLY
     Route: 058
     Dates: start: 20190827
  5. CETIRIZINE [Concomitant]
     Active Substance: CETIRIZINE HYDROCHLORIDE
     Route: 048
     Dates: start: 20190823
  6. ALLEGRA ALLERGY [Concomitant]
     Active Substance: FEXOFENADINE HYDROCHLORIDE
     Route: 048
     Dates: start: 20190823

REACTIONS (3)
  - Intentional product use issue [Unknown]
  - COVID-19 [Recovered/Resolved]
  - Off label use [Unknown]
